FAERS Safety Report 8575265-5 (Version None)
Quarter: 2012Q3

REPORT INFORMATION
  Report Type: 
  Country: None (occurrence: None)
  Receive Date: 20120807
  Receipt Date: 20120730
  Transmission Date: 20120928
  Serious: Yes (Other)
  Sender: FDA-Public Use
  Company Number: US-JNJFOC-20120801542

PATIENT
  Sex: Female
  Weight: 131.54 kg

DRUGS (3)
  1. REMICADE [Suspect]
     Indication: PSORIASIS
     Route: 042
     Dates: start: 20071101, end: 20110401
  2. USTEKINUMAB [Suspect]
     Indication: PSORIASIS
     Dates: start: 20110601
  3. HUMIRA [Suspect]
     Indication: PRODUCT USED FOR UNKNOWN INDICATION
     Dates: end: 20120101

REACTIONS (1)
  - THYROID CANCER [None]
